FAERS Safety Report 20551914 (Version 1)
Quarter: 2022Q1

REPORT INFORMATION
  Report Type: Spontaneous
  Country: JP (occurrence: JP)
  Receive Date: 20220304
  Receipt Date: 20220304
  Transmission Date: 20220424
  Serious: Yes (Other)
  Sender: FDA-Public Use
  Company Number: JP-ADVANZ PHARMA-202202001231

PATIENT

DRUGS (9)
  1. ZONISAMIDE [Suspect]
     Active Substance: ZONISAMIDE
     Indication: Parkinson^s disease
     Dosage: 50 MG, QD (TRERIEF, ORODISPERSIBLE TABLETS)
     Route: 048
  2. ZONISAMIDE [Suspect]
     Active Substance: ZONISAMIDE
     Dosage: 25 MG, QD (TRERIEF, ORODISPERSIBLE TABLETS)
     Route: 048
  3. DONEPEZIL HYDROCHLORIDE [Suspect]
     Active Substance: DONEPEZIL HYDROCHLORIDE
     Indication: Product used for unknown indication
     Dosage: 1 MG, QD
     Route: 048
  4. DONEPEZIL HYDROCHLORIDE [Suspect]
     Active Substance: DONEPEZIL HYDROCHLORIDE
     Dosage: 3 MG, QD
     Route: 048
  5. ISTRADEFYLLINE [Suspect]
     Active Substance: ISTRADEFYLLINE
     Indication: Parkinson^s disease
     Dosage: UNK
     Route: 048
  6. L DOPA [Suspect]
     Active Substance: LEVODOPA
     Dosage: 100 MG
  7. L DOPA [Suspect]
     Active Substance: LEVODOPA
     Dosage: 200 MG
  8. L DOPA [Suspect]
     Active Substance: LEVODOPA
     Dosage: 150 MG
  9. L DOPA [Suspect]
     Active Substance: LEVODOPA
     Dosage: 100 MG

REACTIONS (9)
  - Spinal compression fracture [Unknown]
  - Delirium [Unknown]
  - Delirium [Unknown]
  - Delirium [Recovered/Resolved]
  - Fall [Unknown]
  - Fall [Unknown]
  - Delusion of replacement [Unknown]
  - Persecutory delusion [Unknown]
  - Dizziness [Unknown]
